FAERS Safety Report 4298753-9 (Version None)
Quarter: 2004Q1

REPORT INFORMATION
  Report Type: 
  Country: None (occurrence: None)
  Receive Date: 20040126
  Receipt Date: 20031022
  Transmission Date: 20041129
  Serious: No
  Sender: FDA-Public Use
  Company Number: USA031050640

PATIENT
  Age: 12 Year
  Sex: Male
  Weight: 50 kg

DRUGS (4)
  1. STRATTERA [Suspect]
     Indication: ATTENTION DEFICIT/HYPERACTIVITY DISORDER
     Dosage: 18 MG/DAY
  2. LEXAPRO [Concomitant]
  3. ADDERALL [Concomitant]
  4. BENADRYL [Concomitant]

REACTIONS (5)
  - DELIRIUM [None]
  - HYPERTENSION [None]
  - MYDRIASIS [None]
  - SPEECH DISORDER [None]
  - TACHYCARDIA [None]
